FAERS Safety Report 16877811 (Version 1)
Quarter: 2019Q4

REPORT INFORMATION
  Report Type: Report from Study
  Country: CA (occurrence: CA)
  Receive Date: 20191002
  Receipt Date: 20191002
  Transmission Date: 20200122
  Serious: Yes (Hospitalization)
  Sender: FDA-Public Use
  Company Number: CA-PFIZER INC-2019419382

PATIENT
  Age: 71 Year
  Sex: Male

DRUGS (4)
  1. BRENZYS [Suspect]
     Active Substance: ETANERCEPT
     Dosage: 50 MG/ML, WEEKLY
     Route: 051
  2. METHOTREXATE SODIUM. [Suspect]
     Active Substance: METHOTREXATE SODIUM
     Dosage: UNK
     Route: 065
  3. BRENZYS [Suspect]
     Active Substance: ETANERCEPT
     Indication: RHEUMATOID ARTHRITIS
     Dosage: 50 MG/ML, WEEKLY
     Route: 051
  4. FILGRASTIM [Concomitant]
     Active Substance: FILGRASTIM
     Dosage: UNK

REACTIONS (6)
  - Full blood count decreased [Unknown]
  - Urinary tract infection [Unknown]
  - White blood cell count decreased [Unknown]
  - Pyrexia [Unknown]
  - Feeling cold [Unknown]
  - Neutrophil count decreased [Unknown]
